FAERS Safety Report 6626678-X (Version None)
Quarter: 2010Q1

REPORT INFORMATION
  Report Type: 
  Country: None (occurrence: None)
  Receive Date: 20100308
  Receipt Date: 20100302
  Transmission Date: 20100710
  Serious: Yes (Life-Threatening, Hospitalization, Disabling)
  Sender: FDA-Public Use
  Company Number: OSCN-NO-0903S-0170

PATIENT
  Age: 46 Year
  Sex: Male
  Weight: 53 kg

DRUGS (8)
  1. GADOLINUM (GADODIAMIDE) [Suspect]
     Indication: DRUG USE FOR UNKNOWN INDICATION
     Dosage: NR, SINGLE DOSE, I.V.
     Route: 042
     Dates: start: 20010601, end: 20010601
  2. IRON [Concomitant]
  3. FUROSEMIDE [Concomitant]
  4. BENDROFLUMETHIAZIDE AND POTASSIUM (CENTYL WITH POTASSIUM CHLORIDE) [Concomitant]
  5. DICLOFENAC (VOLTAREN RAPID) [Concomitant]
  6. INSULIN HUMAN (MIXTARD) [Concomitant]
  7. INSULIN HUMAN (ACTRAPID) [Concomitant]
  8. CALCIUM CARBONATE [Concomitant]

REACTIONS (19)
  - ABASIA [None]
  - ARTHRALGIA [None]
  - BRONCHOPNEUMONIA [None]
  - CARDIAC FAILURE [None]
  - GRAVITATIONAL OEDEMA [None]
  - MORPHOEA [None]
  - MUSCLE ATROPHY [None]
  - MUSCLE CONTRACTURE [None]
  - MUSCULOSKELETAL PAIN [None]
  - MYALGIA [None]
  - NEPHROGENIC SYSTEMIC FIBROSIS [None]
  - OEDEMA [None]
  - PAIN IN EXTREMITY [None]
  - PRURITUS [None]
  - RASH [None]
  - SKIN HYPERTROPHY [None]
  - SPLEEN DISORDER [None]
  - VOMITING [None]
  - WOUND [None]
